FAERS Safety Report 20561763 (Version 1)
Quarter: 2022Q1

REPORT INFORMATION
  Report Type: Other
  Country: None (occurrence: CN)
  Receive Date: 20220307
  Receipt Date: 20220307
  Transmission Date: 20220423
  Serious: Yes (Hospitalization, Other)
  Sender: FDA-Public Use
  Company Number: CN-Breckenridge Pharmaceutical, Inc.-2126528

PATIENT
  Age: 54 Year
  Sex: Male

DRUGS (1)
  1. ENTECAVIR [Suspect]
     Active Substance: ENTECAVIR
     Indication: Chronic hepatitis B
     Route: 048
     Dates: start: 2011

REACTIONS (4)
  - Mitochondrial myopathy [Unknown]
  - Respiratory failure [Unknown]
  - Coma [Unknown]
  - Parosmia [Unknown]
